FAERS Safety Report 7133001-3 (Version None)
Quarter: 2010Q4

REPORT INFORMATION
  Report Type: 
  Country: None (occurrence: None)
  Receive Date: 20101202
  Receipt Date: 20101123
  Transmission Date: 20110411
  Serious: Yes (Hospitalization)
  Sender: FDA-Public Use
  Company Number: A0712512A

PATIENT
  Age: 66 Year
  Sex: Male
  Weight: 95.5 kg

DRUGS (6)
  1. AVANDIA [Suspect]
     Dosage: 8MG PER DAY
     Route: 048
     Dates: start: 19990101, end: 20070520
  2. STARLIX [Concomitant]
  3. NEURONTIN [Concomitant]
  4. ASACOL [Concomitant]
  5. AZATHIOPRINE [Concomitant]
  6. PROTONIX [Concomitant]

REACTIONS (2)
  - CEREBROVASCULAR ACCIDENT [None]
  - PAIN [None]
